FAERS Safety Report 10099341 (Version 2)
Quarter: 2014Q2

REPORT INFORMATION
  Report Type: Spontaneous
  Country: US (occurrence: US)
  Receive Date: 20140423
  Receipt Date: 20140423
  Transmission Date: 20141212
  Serious: No
  Sender: FDA-Public Use
  Company Number: US-GILEAD-2013-0070387

PATIENT
  Sex: Male

DRUGS (3)
  1. LETAIRIS [Suspect]
     Indication: COR PULMONALE CHRONIC
     Dosage: 10 MG, QD
     Route: 048
     Dates: start: 20120524
  2. TYVASO [Concomitant]
  3. ADCIRCA [Concomitant]

REACTIONS (4)
  - Cough [Unknown]
  - Throat irritation [Unknown]
  - Laryngeal pain [Unknown]
  - Dizziness [Unknown]
